FAERS Safety Report 9500696 (Version 2)
Quarter: 2013Q4

REPORT INFORMATION
  Report Type: Spontaneous
  Country: FR (occurrence: FR)
  Receive Date: 20130905
  Receipt Date: 20131004
  Transmission Date: 20140711
  Serious: Yes (Hospitalization)
  Sender: FDA-Public Use
  Company Number: FR-PFIZER INC-2013251602

PATIENT
  Age: 71 Year
  Sex: Male

DRUGS (6)
  1. ALDACTONE [Suspect]
     Dosage: 25 MG, DAILY
     Route: 048
     Dates: start: 20130710
  2. ECONAZOLE [Suspect]
     Indication: TINEA PEDIS
     Dosage: ONCE OR TWICE DAILY
     Route: 061
     Dates: start: 201308, end: 20130816
  3. COUMADINE [Suspect]
     Dosage: UNK
     Dates: start: 20130710
  4. KARDEGIC [Suspect]
     Dosage: 75 MG, DAILY
     Route: 048
     Dates: start: 20130710
  5. CARDENSIEL [Suspect]
     Dosage: 2.5 MG, DAILY
     Route: 048
     Dates: start: 20130710
  6. LASILIX [Suspect]
     Dosage: UNK
     Dates: start: 20130710

REACTIONS (1)
  - Vascular purpura [Recovered/Resolved]
